FAERS Safety Report 4368342-6 (Version None)
Quarter: 2004Q2

REPORT INFORMATION
  Report Type: 
  Country: None (occurrence: None)
  Receive Date: 20040525
  Receipt Date: 20040518
  Transmission Date: 20050107
  Serious: Yes (Hospitalization)
  Sender: FDA-Public Use
  Company Number: NLWYE771519MAY04

PATIENT
  Age: 38 Year
  Sex: Female

DRUGS (1)
  1. EFFEXOR XR [Suspect]
     Indication: DEPRESSION
     Dosage: 300 MG 1X PER 1 DAY ORAL
     Route: 048
     Dates: end: 20040517

REACTIONS (3)
  - DYSTONIA [None]
  - EXTRAPYRAMIDAL DISORDER [None]
  - NONSPECIFIC REACTION [None]
